FAERS Safety Report 10744464 (Version 1)
Quarter: 2015Q1

REPORT INFORMATION
  Report Type: Spontaneous
  Country: US (occurrence: None)
  Receive Date: 20150126
  Receipt Date: 20150126
  Transmission Date: 20150721
  Serious: No
  Sender: FDA-Public Use
  Company Number: None

PATIENT
  Age: 50 Year
  Sex: Female
  Weight: 97.52 kg

DRUGS (1)
  1. LEVAQUIN [Suspect]
     Active Substance: LEVOFLOXACIN
     Indication: SINUSITIS
     Dosage: 1 PILL ONCE DAILY TAKEN BY MOUTH
     Route: 048
     Dates: start: 20150106, end: 20150119

REACTIONS (6)
  - Musculoskeletal stiffness [None]
  - Myalgia [None]
  - Gait disturbance [None]
  - Arthralgia [None]
  - Toxicity to various agents [None]
  - Tendon disorder [None]

NARRATIVE: CASE EVENT DATE: 20150123
